FAERS Safety Report 5547230-3 (Version None)
Quarter: 2007Q4

REPORT INFORMATION
  Report Type: 
  Country: None (occurrence: None)
  Receive Date: 20071211
  Receipt Date: 20071204
  Transmission Date: 20080405
  Serious: Yes (Hospitalization)
  Sender: FDA-Public Use
  Company Number: A0697291A

PATIENT
  Age: 89 Year
  Sex: Female

DRUGS (6)
  1. ADVAIR DISKUS 100/50 [Suspect]
     Indication: ASTHMA
     Dosage: 1PUFF TWICE PER DAY
     Route: 055
     Dates: start: 19970101
  2. SINGULAIR [Concomitant]
  3. LASIX [Concomitant]
  4. ZOCOR [Concomitant]
  5. NEXIUM [Concomitant]
  6. AZITHROMYCIN [Concomitant]

REACTIONS (3)
  - BRONCHITIS [None]
  - PNEUMONIA [None]
  - SEPSIS [None]
